FAERS Safety Report 10017322 (Version 4)
Quarter: 2014Q2

REPORT INFORMATION
  Report Type: Spontaneous
  Country: JP (occurrence: JP)
  Receive Date: 20140318
  Receipt Date: 20140512
  Transmission Date: 20141212
  Serious: Yes (Hospitalization, Other)
  Sender: FDA-Public Use
  Company Number: JP-JNJFOC-20140309714

PATIENT
  Age: 46 Year
  Sex: Female

DRUGS (1)
  1. ORTHO M 21 [Suspect]
     Indication: MENORRHAGIA
     Route: 048
     Dates: start: 200907

REACTIONS (3)
  - Deep vein thrombosis [Unknown]
  - Cerebral infarction [Recovering/Resolving]
  - Off label use [Unknown]
